FAERS Safety Report 4487921-9 (Version None)
Quarter: 2004Q4

REPORT INFORMATION
  Report Type: 
  Country: None (occurrence: None)
  Receive Date: 20041028
  Receipt Date: 20041018
  Transmission Date: 20050328
  Serious: Yes (Death)
  Sender: FDA-Public Use
  Company Number: PT-AMGEN-UK095959

PATIENT
  Sex: Female
  Weight: 56 kg

DRUGS (6)
  1. NEUPOGEN [Suspect]
     Indication: CHEMOTHERAPY
     Route: 065
  2. NEULASTA [Suspect]
     Indication: CHEMOTHERAPY
     Route: 058
     Dates: start: 20040429
  3. CYCLOPHOSPHAMIDE [Concomitant]
  4. DOXORUBICIN HCL [Concomitant]
  5. VINCRISTINE [Concomitant]
  6. PREDNISONE [Concomitant]

REACTIONS (4)
  - NEUTROPENIA [None]
  - PNEUMONIA [None]
  - POST PROCEDURAL COMPLICATION [None]
  - RESPIRATORY TRACT INFECTION [None]
